FAERS Safety Report 14533782 (Version 1)
Quarter: 2018Q1

REPORT INFORMATION
  Report Type: Spontaneous
  Country: PT (occurrence: PT)
  Receive Date: 20180215
  Receipt Date: 20180215
  Transmission Date: 20180509
  Serious: Yes (Hospitalization, Other)
  Sender: FDA-Public Use
  Company Number: PT-ACCORD-063260

PATIENT
  Age: 23 Year
  Sex: Male

DRUGS (4)
  1. FUROSEMIDE. [Suspect]
     Active Substance: FUROSEMIDE
     Indication: PULMONARY HYPERTENSION
  2. CALCITRIOL. [Concomitant]
     Active Substance: CALCITRIOL
     Indication: PAPILLARY THYROID CANCER
  3. LEVOTHYROXINE. [Concomitant]
     Active Substance: LEVOTHYROXINE
     Indication: PAPILLARY THYROID CANCER
  4. CALCIUM CARBONATE. [Concomitant]
     Active Substance: CALCIUM CARBONATE
     Indication: PAPILLARY THYROID CANCER

REACTIONS (3)
  - Cardiac failure acute [Recovering/Resolving]
  - Hypocalcaemia [Recovered/Resolved]
  - Neuromyopathy [Unknown]
